FAERS Safety Report 4598817-6 (Version None)
Quarter: 2005Q1

REPORT INFORMATION
  Report Type: 
  Country: None (occurrence: None)
  Receive Date: 20050301
  Receipt Date: 20050216
  Transmission Date: 20050727
  Serious: Yes (Other)
  Sender: FDA-Public Use
  Company Number: 2005032857

PATIENT
  Age: 36 Year
  Sex: Female
  Weight: 77.1115 kg

DRUGS (8)
  1. CELEBREX [Suspect]
     Indication: FIBROMYALGIA
     Dosage: 800 MG (400 MG, 2 IN 1 D), ORAL
     Route: 048
  2. BEXTRA [Suspect]
     Indication: FIBROMYALGIA
     Dates: end: 20040101
  3. GABAPENTIN [Concomitant]
  4. HYDROCODONE BITARTRATE [Concomitant]
  5. CLONAZEPAM [Concomitant]
  6. PAROXETINE HCL [Concomitant]
  7. QUETIAPINE FUMARATE (QUETIAPINE FUMARATE) [Concomitant]
  8. ALL OTHER THERAPEUTIC PRODUCTS [Concomitant]

REACTIONS (3)
  - CARDIAC FAILURE CONGESTIVE [None]
  - DRUG INEFFECTIVE [None]
  - HEART RATE IRREGULAR [None]
